FAERS Safety Report 21842991 (Version 2)
Quarter: 2023Q1

REPORT INFORMATION
  Report Type: Report from Study
  Country: CA (occurrence: CA)
  Receive Date: 20230110
  Receipt Date: 20230316
  Transmission Date: 20230418
  Serious: Yes (Congenital Anomaly, Other)
  Sender: FDA-Public Use
  Company Number: CA-BRISTOL-MYERS SQUIBB COMPANY-2022-158170

PATIENT
  Age: 66 Year
  Sex: Male
  Weight: 70 kg

DRUGS (8)
  1. PREVNAR 13 [Suspect]
     Active Substance: PNEUMOCOCCAL 13-VALENT CONJUGATE VACCINE
     Indication: Immunisation
     Dosage: TOTAL
     Route: 030
  2. APIXABAN [Suspect]
     Active Substance: APIXABAN
     Dosage: 1 DF
  3. EPINEPHRINE [Suspect]
     Active Substance: EPINEPHRINE
     Indication: Anaphylactic reaction
     Dosage: UNK
  4. UMECLIDINIUM BROMIDE [Suspect]
     Active Substance: UMECLIDINIUM BROMIDE
     Dosage: 1 DF
  5. ALBUTEROL [Suspect]
     Active Substance: ALBUTEROL
     Dosage: 100 UG
  6. PREDNISONE [Suspect]
     Active Substance: PREDNISONE
     Indication: Asthma
     Dosage: UNK
     Route: 048
  7. OMALIZUMAB [Suspect]
     Active Substance: OMALIZUMAB
     Dosage: UNK
  8. BUDESONIDE [Suspect]
     Active Substance: BUDESONIDE
     Dosage: UNK
     Route: 055

REACTIONS (10)
  - Factor V Leiden mutation [Unknown]
  - Asthma [Unknown]
  - Bronchopulmonary aspergillosis allergic [Unknown]
  - Chronic obstructive pulmonary disease [Unknown]
  - Drug ineffective [Unknown]
  - Dyspnoea [Unknown]
  - Loss of personal independence in daily activities [Unknown]
  - Multiple allergies [Unknown]
  - Therapeutic product effect incomplete [Unknown]
  - Off label use [Unknown]
